FAERS Safety Report 16946509 (Version 2)
Quarter: 2019Q4

REPORT INFORMATION
  Report Type: Spontaneous
  Country: GB (occurrence: GB)
  Receive Date: 20191022
  Receipt Date: 20191030
  Transmission Date: 20200122
  Serious: Yes (Life-Threatening, Hospitalization)
  Sender: FDA-Public Use
  Company Number: GB-MYLANLABS-2019M1099573

PATIENT
  Age: 74 Year
  Sex: Female
  Weight: 67 kg

DRUGS (2)
  1. CARBAMAZEPINE. [Suspect]
     Active Substance: CARBAMAZEPINE
     Indication: TRIGEMINAL NEURALGIA
     Dosage: 200 MILLIGRAM, QD
     Route: 048
     Dates: start: 20190919
  2. CASSIA ACUTIFOLIA [Concomitant]
     Dosage: 2 DOSAGE FORM, PRN (AT NIGHT)

REACTIONS (10)
  - Feeling abnormal [Unknown]
  - Inappropriate antidiuretic hormone secretion [Unknown]
  - Nausea [Unknown]
  - Hyponatraemia [Recovering/Resolving]
  - Foaming at mouth [Unknown]
  - Urinary incontinence [Unknown]
  - Dizziness [Unknown]
  - Seizure [Recovering/Resolving]
  - Somnolence [Unknown]
  - Diplopia [Unknown]

NARRATIVE: CASE EVENT DATE: 20190922
